FAERS Safety Report 14192143 (Version 1)
Quarter: 2017Q4

REPORT INFORMATION
  Report Type: Spontaneous
  Country: IL (occurrence: IL)
  Receive Date: 20171115
  Receipt Date: 20171115
  Transmission Date: 20180321
  Serious: Yes (Hospitalization, Disabling)
  Sender: FDA-Public Use
  Company Number: IL-SA-2017SA224594

PATIENT
  Age: 75 Year
  Sex: Male

DRUGS (2)
  1. LANTUS [Suspect]
     Active Substance: INSULIN GLARGINE
     Dosage: 6 UNITS IN THE MORNING, 8 UNITS AT NIGHT
     Route: 058
     Dates: start: 2013
  2. NOVORAPID [Suspect]
     Active Substance: INSULIN ASPART
     Dosage: 20 UNITS IN THE MORNING, 24 UNITS IN THE NIGHT
     Route: 065

REACTIONS (5)
  - Product use issue [Unknown]
  - Cerebrovascular accident [Recovering/Resolving]
  - Hospitalisation [Unknown]
  - Visual impairment [Not Recovered/Not Resolved]
  - Memory impairment [Unknown]

NARRATIVE: CASE EVENT DATE: 2017
